FAERS Safety Report 22537125 (Version 1)
Quarter: 2023Q2

REPORT INFORMATION
  Report Type: Spontaneous
  Country: SG (occurrence: SG)
  Receive Date: 20230608
  Receipt Date: 20230608
  Transmission Date: 20230721
  Serious: Yes (Hospitalization)
  Sender: FDA-Public Use
  Company Number: SG-TEVA-2023-SG-2894168

PATIENT
  Age: 53 Year
  Sex: Male

DRUGS (3)
  1. PREDNISOLONE [Suspect]
     Active Substance: PREDNISOLONE
     Indication: Graft versus host disease in lung
     Dosage: 15 MILLIGRAM DAILY; RECEIVED ON ALTERNATE DAYS, ONCE A DAY
     Route: 065
  2. PREDNISOLONE [Suspect]
     Active Substance: PREDNISOLONE
     Dosage: 10 MILLIGRAM DAILY; RECEIVED ON ALTERNATE DAYS, ONCE A DAY
     Route: 065
  3. RUXOLITINIB [Suspect]
     Active Substance: RUXOLITINIB
     Indication: Graft versus host disease in lung
     Dosage: 5 MILLIGRAM DAILY; ONCE A DAY
     Route: 065

REACTIONS (1)
  - COVID-19 [Not Recovered/Not Resolved]
